FAERS Safety Report 5140816-X (Version None)
Quarter: 2006Q4

REPORT INFORMATION
  Report Type: 
  Country: None (occurrence: None)
  Receive Date: 20061026
  Receipt Date: 20060808
  Transmission Date: 20070319
  Serious: Yes (Hospitalization)
  Sender: FDA-Public Use
  Company Number: 2006-08-0459

PATIENT
  Age: 48 Year
  Sex: Female

DRUGS (3)
  1. TEMODAL [Suspect]
     Indication: GLIOBLASTOMA
     Dosage: 320 MG; QD; PO
     Route: 048
     Dates: start: 20060515, end: 20060519
  2. MEDROL [Concomitant]
  3. DAFALGAN [Concomitant]

REACTIONS (3)
  - BONE MARROW FAILURE [None]
  - BRAIN SCAN ABNORMAL [None]
  - SEPSIS [None]
